FAERS Safety Report 7262624-6 (Version None)
Quarter: 2011Q1

REPORT INFORMATION
  Report Type: 
  Country: None (occurrence: None)
  Receive Date: 20110130
  Receipt Date: 20101115
  Transmission Date: 20110831
  Serious: No
  Sender: FDA-Public Use
  Company Number: US-ABBOTT-10P-163-0665438-00

PATIENT
  Sex: Female
  Weight: 61.29 kg

DRUGS (8)
  1. HUMIRA [Suspect]
     Indication: CROHN'S DISEASE
     Dates: start: 20080606, end: 20100701
  2. HUMIRA [Suspect]
     Indication: RHEUMATOID ARTHRITIS
  3. LEVOXYL [Concomitant]
     Indication: THYROID DISORDER
  4. TRICOR [Concomitant]
     Indication: BLOOD CHOLESTEROL INCREASED
  5. LEVOXYL [Concomitant]
     Indication: HYPOTHYROIDISM
  6. EFFEXOR [Concomitant]
     Indication: DEPRESSION
  7. TRICOR [Concomitant]
     Indication: BLOOD TRIGLYCERIDES INCREASED
  8. LISINOPRIL [Concomitant]
     Indication: HYPERTENSION

REACTIONS (4)
  - HYPERSENSITIVITY [None]
  - URTICARIA [None]
  - SCAR [None]
  - SKIN DISCOLOURATION [None]
